FAERS Safety Report 13666488 (Version 1)
Quarter: 2017Q2

REPORT INFORMATION
  Report Type: Spontaneous
  Country: US (occurrence: US)
  Receive Date: 20170619
  Receipt Date: 20170619
  Transmission Date: 20170830
  Serious: No
  Sender: FDA-Public Use
  Company Number: US-ROCHE-1356072

PATIENT
  Age: 77 Year
  Sex: Female
  Weight: 54.93 kg

DRUGS (6)
  1. XARELTO [Concomitant]
     Active Substance: RIVAROXABAN
  2. XANAX [Concomitant]
     Active Substance: ALPRAZOLAM
  3. AMIODARONE [Concomitant]
     Active Substance: AMIODARONE
  4. COLACE [Concomitant]
     Active Substance: DOCUSATE SODIUM
  5. XELODA [Suspect]
     Active Substance: CAPECITABINE
     Indication: RECTOSIGMOID CANCER
     Dosage: BID X2 WEEKS, EVERY 3 WEEKS
     Route: 048
     Dates: start: 20131212
  6. ATIVAN [Concomitant]
     Active Substance: LORAZEPAM

REACTIONS (1)
  - Palmar-plantar erythrodysaesthesia syndrome [Not Recovered/Not Resolved]

NARRATIVE: CASE EVENT DATE: 20140122
